FAERS Safety Report 8897246 (Version 1)
Quarter: 2012Q4

REPORT INFORMATION
  Report Type: Spontaneous
  Country: CA (occurrence: None)
  Receive Date: 20121105
  Receipt Date: 20121105
  Transmission Date: 20130627
  Serious: Yes (Death, Other)
  Sender: FDA-Public Use
  Company Number: DSA_60442_2012

PATIENT

DRUGS (5)
  1. METRONIDAZOLE (METRONIDAZOLE) [Suspect]
     Indication: NEOPLASM
     Route: 048
  2. METRONIDAZOLE (METRONIDAZOLE) [Suspect]
     Indication: NEOPLASM
     Route: 054
  3. METRONIDAZOLE (METRONIDAZOLE) [Suspect]
     Indication: NEOPLASM
     Route: 054
  4. ETOPOSIDE [Suspect]
     Route: 042
  5. KETOCONAZOLE [Suspect]
     Dosage: each morning
     Route: 048

REACTIONS (3)
  - Gastrointestinal haemorrhage [None]
  - Convulsion [None]
  - Pneumonia aspiration [None]
